FAERS Safety Report 12906393 (Version 4)
Quarter: 2016Q4

REPORT INFORMATION
  Report Type: Spontaneous
  Country: US (occurrence: US)
  Receive Date: 20161103
  Receipt Date: 20161227
  Transmission Date: 20170207
  Serious: Yes (Other)
  Sender: FDA-Public Use
  Company Number: US-PFIZER INC-2016508226

PATIENT
  Age: 10 Year
  Sex: Female
  Weight: 43 kg

DRUGS (6)
  1. GENOTROPIN [Suspect]
     Active Substance: SOMATROPIN
     Indication: HYPOPITUITARISM
     Dosage: 0.9 MG, DAILY (EVERY NIGHT)
     Dates: start: 2007
  2. PREDNISONE. [Concomitant]
     Active Substance: PREDNISONE
     Indication: HYPOPITUITARISM
     Dosage: 0.7 ML, 2X/DAY
  3. SYNTHROID [Concomitant]
     Active Substance: LEVOTHYROXINE SODIUM
     Indication: HYPOPITUITARISM
     Dosage: 75 UG, DAILY (EVERY MORNING)
  4. DEPAKOTE [Concomitant]
     Active Substance: DIVALPROEX SODIUM
     Indication: EPILEPSY
     Dosage: 500 MG, 2X/DAY (FOUR CAPSULES IN MORNING AND FOUR IN EVENING)
  5. VIMPAT [Concomitant]
     Active Substance: LACOSAMIDE
     Indication: EPILEPSY
     Dosage: 150 MG, 4X/DAY (TWO TABLETS IN MORNING AND TWO IN THE EVENING)
  6. CLONAZEPAM. [Concomitant]
     Active Substance: CLONAZEPAM
     Indication: EPILEPSY
     Dosage: 1.025 MG, DAILY (0.25 MG MELT AWAY IN MORNING AND 1 MG MELT AWAY IN EVENING)

REACTIONS (6)
  - Seizure [Unknown]
  - Condition aggravated [Unknown]
  - Swelling face [Unknown]
  - Injection site bruising [Not Recovered/Not Resolved]
  - Product quality issue [Unknown]
  - Increased appetite [Unknown]

NARRATIVE: CASE EVENT DATE: 2016
